FAERS Safety Report 6185054-7 (Version None)
Quarter: 2009Q2

REPORT INFORMATION
  Report Type: 
  Country: None (occurrence: None)
  Receive Date: 20090511
  Receipt Date: 20090428
  Transmission Date: 20091009
  Serious: Yes (Other)
  Sender: FDA-Public Use
  Company Number: US-JNJFOC-20090305352

PATIENT
  Sex: Female
  Weight: 48.54 kg

DRUGS (10)
  1. REMICADE [Suspect]
     Indication: COLITIS ULCERATIVE
     Route: 042
  2. BENICAR [Concomitant]
  3. TENORMIN [Concomitant]
  4. NAHCO3 [Concomitant]
  5. CALCIUM + VIT D [Concomitant]
  6. FERROUS SULFATE TAB [Concomitant]
  7. SINEQUAN [Concomitant]
  8. ACTONEL [Concomitant]
  9. VESICARE [Concomitant]
  10. ENABLEX [Concomitant]

REACTIONS (3)
  - BLOOD CREATININE INCREASED [None]
  - BLOOD TRIGLYCERIDES INCREASED [None]
  - HYPERGLYCAEMIA [None]
